FAERS Safety Report 10526125 (Version 1)
Quarter: 2014Q4

REPORT INFORMATION
  Report Type: Spontaneous
  Country: US (occurrence: US)
  Receive Date: 20141017
  Receipt Date: 20141017
  Transmission Date: 20150528
  Serious: Yes (Hospitalization, Other)
  Sender: FDA-Public Use
  Company Number: US-ABBVIE-14P-163-1295516-00

PATIENT
  Age: 47 Year
  Sex: Male

DRUGS (1)
  1. ANDROGEL [Suspect]
     Active Substance: TESTOSTERONE
     Indication: BLOOD TESTOSTERONE DECREASED
     Route: 062
     Dates: start: 20120917, end: 20130317

REACTIONS (11)
  - Cerebrovascular accident [Unknown]
  - Cerebral disorder [Unknown]
  - Anxiety [Unknown]
  - Economic problem [Unknown]
  - Injury [Unknown]
  - Pain [Unknown]
  - Impaired work ability [Unknown]
  - Social problem [Unknown]
  - Fear [Unknown]
  - Emotional distress [Unknown]
  - Anhedonia [Unknown]

NARRATIVE: CASE EVENT DATE: 20130418
